FAERS Safety Report 16992905 (Version 1)
Quarter: 2019Q4

REPORT INFORMATION
  Report Type: Spontaneous
  Country: US (occurrence: US)
  Receive Date: 20191104
  Receipt Date: 20191104
  Transmission Date: 20200122
  Serious: Yes (Disabling, Other)
  Sender: FDA-Public Use
  Company Number: None

PATIENT
  Age: 53 Year
  Sex: Female
  Weight: 63 kg

DRUGS (4)
  1. COSENTYX [Suspect]
     Active Substance: SECUKINUMAB
     Indication: PSORIATIC ARTHROPATHY
     Dosage: ?          QUANTITY:1 INJECTION(S);OTHER FREQUENCY:150 MG/ML  WITH  5 STARTING DOSES FOR 5 WEEKS?
     Route: 030
     Dates: start: 20190412, end: 20190802
  2. BUNAVAIL [Concomitant]
     Active Substance: BUPRENORPHINE HYDROCHLORIDE\NALOXONE HYDROCHLORIDE
  3. COSENTYX [Suspect]
     Active Substance: SECUKINUMAB
     Indication: PSORIASIS
     Dosage: ?          QUANTITY:1 INJECTION(S);OTHER FREQUENCY:150 MG/ML  WITH  5 STARTING DOSES FOR 5 WEEKS?
     Route: 030
     Dates: start: 20190412, end: 20190802
  4. CITALOPRAM [Concomitant]
     Active Substance: CITALOPRAM HYDROBROMIDE

REACTIONS (2)
  - Paraesthesia [None]
  - Vitiligo [None]

NARRATIVE: CASE EVENT DATE: 20190811
